FAERS Safety Report 10280760 (Version 1)
Quarter: 2014Q3

REPORT INFORMATION
  Report Type: Spontaneous
  Country: US (occurrence: None)
  Receive Date: 20140702
  Receipt Date: 20140702
  Transmission Date: 20150326
  Serious: Yes (Death)
  Sender: FDA-Public Use
  Company Number: 2014STPI000284

PATIENT
  Age: 2 Month
  Sex: Male

DRUGS (1)
  1. ADAGEN [Suspect]
     Active Substance: PEGADEMASE BOVINE
     Indication: COMBINED IMMUNODEFICIENCY
     Route: 030
     Dates: start: 20140603, end: 20140616

REACTIONS (2)
  - Pneumonia parainfluenzae viral [None]
  - Respiratory failure [None]

NARRATIVE: CASE EVENT DATE: 20140617
